FAERS Safety Report 6664884-9 (Version None)
Quarter: 2010Q2

REPORT INFORMATION
  Report Type: 
  Country: None (occurrence: None)
  Receive Date: 20100402
  Receipt Date: 20100325
  Transmission Date: 20101027
  Serious: No
  Sender: FDA-Public Use
  Company Number: US-BIOGENIDEC-2010BI006868

PATIENT
  Age: 24 Year
  Sex: Female

DRUGS (1)
  1. TYSABRI [Suspect]
     Indication: MULTIPLE SCLEROSIS
     Route: 042
     Dates: start: 20100111, end: 20100208

REACTIONS (4)
  - HEART RATE INCREASED [None]
  - HYPERSENSITIVITY [None]
  - RASH GENERALISED [None]
  - RESPIRATORY ARREST [None]
